FAERS Safety Report 16798272 (Version 1)
Quarter: 2019Q3

REPORT INFORMATION
  Report Type: Spontaneous
  Country: CA (occurrence: CA)
  Receive Date: 20190912
  Receipt Date: 20190912
  Transmission Date: 20191005
  Serious: Yes (Other)
  Sender: FDA-Public Use
  Company Number: CA-VALIDUS PHARMACEUTICALS LLC-CA-2019VAL000490

PATIENT

DRUGS (2)
  1. FUROSEMIDE. [Suspect]
     Active Substance: FUROSEMIDE
     Indication: CARDIAC FAILURE ACUTE
     Dosage: 1 G, QD
     Route: 042
  2. MILRINONE LACTATE. [Suspect]
     Active Substance: MILRINONE LACTATE
     Indication: CARDIAC FAILURE ACUTE
     Dosage: 0.375 ?G/KG, QMN
     Route: 065

REACTIONS (2)
  - Ventricular tachycardia [Recovered/Resolved]
  - Hypotension [Recovered/Resolved]
